FAERS Safety Report 8549235-7 (Version None)
Quarter: 2012Q3

REPORT INFORMATION
  Report Type: 
  Country: None (occurrence: None)
  Receive Date: 20120730
  Receipt Date: 20120725
  Transmission Date: 20120928
  Serious: Yes (Life-Threatening, Hospitalization, Other)
  Sender: FDA-Public Use
  Company Number: PHHY2012ZA062197

PATIENT
  Sex: Male

DRUGS (1)
  1. FAMVIR [Suspect]
     Indication: HERPES ZOSTER
     Dosage: 250 MG, 2 DF
     Route: 048
     Dates: start: 20120715, end: 20120716

REACTIONS (16)
  - CARDIAC ARREST [None]
  - MALAISE [None]
  - NEURALGIA [None]
  - ASTHENIA [None]
  - BACK PAIN [None]
  - PROSTATE INFECTION [None]
  - WEIGHT DECREASED [None]
  - SEPSIS [None]
  - PLEURAL EFFUSION [None]
  - ABDOMINAL PAIN UPPER [None]
  - NERVE INJURY [None]
  - GASTRIC ULCER PERFORATION [None]
  - PAIN IN EXTREMITY [None]
  - APNOEA [None]
  - CANDIDIASIS [None]
  - MUSCULOSKELETAL PAIN [None]
